FAERS Safety Report 6302084-2 (Version None)
Quarter: 2009Q3

REPORT INFORMATION
  Report Type: 
  Country: None (occurrence: None)
  Receive Date: 20090807
  Receipt Date: 20090729
  Transmission Date: 20100115
  Serious: Yes (Hospitalization, Other)
  Sender: FDA-Public Use
  Company Number: US-ELI_LILLY_AND_COMPANY-US200906000882

PATIENT
  Sex: Female

DRUGS (8)
  1. FORTEO [Suspect]
     Indication: OSTEOPOROSIS
     Dosage: 20 UG, DAILY (1/D)
     Dates: start: 20090602, end: 20090622
  2. FORTEO [Suspect]
     Dosage: UNK, UNK
     Dates: start: 20090716, end: 20090716
  3. ANALGESICS [Concomitant]
     Indication: BACK PAIN
  4. CALCIUM [Concomitant]
  5. MAGNESIUM [Concomitant]
  6. ATIVAN [Concomitant]
     Indication: ANXIETY
  7. OXYCODONE [Concomitant]
     Indication: BACK PAIN
  8. ANTIHYPERTENSIVES [Concomitant]
     Dates: end: 20090622

REACTIONS (8)
  - COUGH [None]
  - DEPRESSED LEVEL OF CONSCIOUSNESS [None]
  - FEELING ABNORMAL [None]
  - LEFT VENTRICULAR DYSFUNCTION [None]
  - LETHARGY [None]
  - LOSS OF CONSCIOUSNESS [None]
  - MYOCARDIAL INFARCTION [None]
  - SCAR [None]
